FAERS Safety Report 14511595 (Version 2)
Quarter: 2019Q1

REPORT INFORMATION
  Report Type: Spontaneous
  Country: US (occurrence: US)
  Receive Date: 20180209
  Receipt Date: 20190124
  Transmission Date: 20190417
  Serious: No
  Sender: FDA-Public Use
  Company Number: US-ENDO PHARMACEUTICALS INC-2017-005388

PATIENT
  Age: 77 Year
  Sex: Male
  Weight: 113.38 kg

DRUGS (3)
  1. ATENOLOL. [Concomitant]
     Active Substance: ATENOLOL
     Indication: HYPERTENSION
  2. TESTOSTERONE. [Suspect]
     Active Substance: TESTOSTERONE
     Dosage: UNK, FOUR PUMPS PER DAY
     Route: 061
     Dates: end: 201710
  3. TESTOSTERONE. [Suspect]
     Active Substance: TESTOSTERONE
     Indication: BLOOD TESTOSTERONE DECREASED
     Dosage: UNK, TWO PUMPS APPLIED TO THIGH DAILY
     Route: 061
     Dates: end: 201710

REACTIONS (9)
  - Confusional state [Unknown]
  - Product physical issue [Recovered/Resolved]
  - Crying [Not Recovered/Not Resolved]
  - Drug ineffective [Recovered/Resolved]
  - Product administered at inappropriate site [Unknown]
  - Fatigue [Not Recovered/Not Resolved]
  - Inappropriate schedule of product administration [Recovered/Resolved]
  - Blood oestrogen increased [Not Recovered/Not Resolved]
  - Prescribed underdose [Recovered/Resolved]

NARRATIVE: CASE EVENT DATE: 201709
